FAERS Safety Report 6956792-0 (Version None)
Quarter: 2010Q3

REPORT INFORMATION
  Report Type: 
  Country: None (occurrence: None)
  Receive Date: 20100830
  Receipt Date: 20100813
  Transmission Date: 20110219
  Serious: Yes (Other)
  Sender: FDA-Public Use
  Company Number: PHHY2010US56276

PATIENT
  Sex: Male
  Weight: 90.703 kg

DRUGS (1)
  1. AREDIA [Suspect]
     Dosage: UNK
     Dates: start: 19990101, end: 20040101

REACTIONS (5)
  - BACTERIAL DISEASE CARRIER [None]
  - HERPES ZOSTER [None]
  - HYPERPLASIA [None]
  - OSTEONECROSIS [None]
  - STEM CELL TRANSPLANT [None]
